FAERS Safety Report 4753579-4 (Version None)
Quarter: 2005Q3

REPORT INFORMATION
  Report Type: 
  Country: None (occurrence: None)
  Receive Date: 20050826
  Receipt Date: 20050818
  Transmission Date: 20060218
  Serious: Yes (Disabling)
  Sender: FDA-Public Use
  Company Number: JP-JNJFOC-20050803982

PATIENT
  Age: 70 Year
  Sex: Male

DRUGS (2)
  1. TARAVID [Suspect]
     Indication: PROSTATITIS
     Route: 048
     Dates: start: 20050609
  2. TAMSULOSINE [Concomitant]

REACTIONS (1)
  - VISUAL DISTURBANCE [None]
